FAERS Safety Report 6416253-4 (Version None)
Quarter: 2009Q4

REPORT INFORMATION
  Report Type: 
  Country: None (occurrence: None)
  Receive Date: 20091023
  Receipt Date: 20091009
  Transmission Date: 20100525
  Serious: Yes (Other)
  Sender: FDA-Public Use
  Company Number: AVE_00995_2009

PATIENT
  Sex: Female

DRUGS (4)
  1. CLONIDINE [Suspect]
     Indication: HYPERTENSION
     Dosage: (0.6 MG QD, VIA 2/WEEKLY PATCHES TRANSDERMAL)
     Route: 062
     Dates: start: 20090907
  2. CLONIDINE [Concomitant]
  3. ATACAND [Concomitant]
  4. LASIX [Concomitant]

REACTIONS (4)
  - BLOOD PRESSURE INADEQUATELY CONTROLLED [None]
  - HYPERTENSIVE CRISIS [None]
  - PRODUCT ADHESION ISSUE [None]
  - PRODUCT SUBSTITUTION ISSUE [None]
